FAERS Safety Report 6145404-4 (Version None)
Quarter: 2009Q2

REPORT INFORMATION
  Report Type: 
  Country: None (occurrence: None)
  Receive Date: 20090402
  Receipt Date: 20090317
  Transmission Date: 20091009
  Serious: Yes (Hospitalization)
  Sender: FDA-Public Use
  Company Number: 000542

PATIENT
  Age: 80 Year
  Sex: Male

DRUGS (16)
  1. METHOCARBAMOL [Suspect]
     Indication: MUSCLE SPASMS
     Dosage: 750 MG QD, ORAL
     Route: 048
     Dates: start: 20080310
  2. OXYCODONE HCL [Suspect]
     Dosage: 2 TAB, PRN
     Dates: start: 20080310
  3. PRAMIPEXOLE DIHYDROCHLORIDE [Suspect]
  4. CARBIDOPA [Concomitant]
  5. LEVODOPA [Concomitant]
  6. PEPCID AC [Concomitant]
  7. METOPROLOL TARTRATE [Concomitant]
  8. LIPITOR [Concomitant]
  9. AGGRENOX [Concomitant]
  10. LISINOPRIL [Concomitant]
  11. BACLOFEN [Concomitant]
  12. ZANTAC [Concomitant]
  13. GLYCERIN [Concomitant]
  14. SODIUM PHOSPHATES [Concomitant]
  15. HYDROCHLOROTHIAZIDE [Concomitant]
  16. EX-LAX [Concomitant]

REACTIONS (5)
  - ANURIA [None]
  - AUTONOMIC NERVOUS SYSTEM IMBALANCE [None]
  - CONSTIPATION [None]
  - THERAPEUTIC PRODUCT INEFFECTIVE [None]
  - URINARY RETENTION [None]
